FAERS Safety Report 7327851-8 (Version None)
Quarter: 2011Q1

REPORT INFORMATION
  Report Type: 
  Country: None (occurrence: None)
  Receive Date: 20110303
  Receipt Date: 20110228
  Transmission Date: 20110831
  Serious: No
  Sender: FDA-Public Use
  Company Number: US-PFIZER INC-2011043967

PATIENT
  Sex: Male
  Weight: 31.746 kg

DRUGS (1)
  1. CHILDREN'S ADVIL [Suspect]
     Indication: PYREXIA
     Dosage: TWO TEASPOONS AT AN UNKNOWN FREQUENCY
     Dates: start: 20110227

REACTIONS (1)
  - ABDOMINAL PAIN UPPER [None]
